FAERS Safety Report 10068775 (Version 1)
Quarter: 2014Q2

REPORT INFORMATION
  Report Type: Spontaneous
  Country: US (occurrence: US)
  Receive Date: 20140409
  Receipt Date: 20140409
  Transmission Date: 20141212
  Serious: No
  Sender: FDA-Public Use
  Company Number: US-MYLANLABS-2014S1002779

PATIENT
  Age: 79 Year
  Sex: Male
  Weight: 86.18 kg

DRUGS (5)
  1. VALSARTAN AND HYDROCHLOROTHIAZIDE TABLETS [Suspect]
     Indication: BLOOD PRESSURE
     Route: 048
     Dates: start: 201401, end: 2014
  2. VALSARTAN AND HYDROCHLOROTHIAZIDE TABLETS [Suspect]
     Indication: BLOOD PRESSURE
     Route: 048
     Dates: start: 2014
  3. ALCOHOL [Suspect]
  4. METOPROLOL [Concomitant]
  5. SIMVASTATIN [Concomitant]

REACTIONS (4)
  - Blood pressure fluctuation [Not Recovered/Not Resolved]
  - Blood pressure increased [Not Recovered/Not Resolved]
  - Flushing [Not Recovered/Not Resolved]
  - Alcohol interaction [Not Recovered/Not Resolved]
